FAERS Safety Report 9800723 (Version 2)
Quarter: 2014Q1

REPORT INFORMATION
  Report Type: Report from Study
  Country: CN (occurrence: CN)
  Receive Date: 20140107
  Receipt Date: 20140319
  Transmission Date: 20141002
  Serious: Yes (Other)
  Sender: FDA-Public Use
  Company Number: CN-ROCHE-1327891

PATIENT
  Sex: 0

DRUGS (5)
  1. CAPECITABINE [Suspect]
     Indication: GASTRIC CANCER
     Dosage: AT LEVEL I (CAPECITABINE 625 MG/M2)
     Route: 048
  2. CAPECITABINE [Suspect]
     Dosage: AT LEVEL II (CAPECITABINE 700 MG/M2)
     Route: 048
  3. CAPECITABINE [Suspect]
     Dosage: AT LEVEL III (CAPECITABINE 800 MG/M2)
     Route: 048
  4. CAPECITABINE [Suspect]
     Dosage: AT LEVEL IV (CAPECITABINE 900 MG/M2)
     Route: 048
  5. CAPECITABINE [Suspect]
     Dosage: AT LEVEL V (CAPECITABINE 1000 MG/M2)
     Route: 048

REACTIONS (6)
  - Neutropenia [Unknown]
  - Vomiting [Unknown]
  - Nausea [Unknown]
  - Decreased appetite [Unknown]
  - Radiation oesophagitis [Unknown]
  - Leukopenia [Unknown]
